FAERS Safety Report 12670939 (Version 1)
Quarter: 2016Q3

REPORT INFORMATION
  Report Type: Spontaneous
  Country: US (occurrence: None)
  Receive Date: 20160819
  Receipt Date: 20160819
  Transmission Date: 20161109
  Serious: Yes (Other)
  Sender: FDA-Public Use
  Company Number: None

PATIENT
  Age: 50 Year
  Sex: Female
  Weight: 90.72 kg

DRUGS (11)
  1. TOPROL XL [Concomitant]
     Active Substance: METOPROLOL SUCCINATE
  2. MULTI VIT [Concomitant]
  3. METHOTREXATE. [Concomitant]
     Active Substance: METHOTREXATE
  4. REMICADE [Concomitant]
     Active Substance: INFLIXIMAB
  5. CELECOXIB CAPS 200 MG, 200 MG MYLAN [Suspect]
     Active Substance: CELECOXIB
     Indication: RHEUMATOID ARTHRITIS
     Dosage: 2 CAPSULE(S) TWICE A DAY TAKEN BY MOUTH
     Route: 048
     Dates: start: 20160101, end: 20160731
  6. SYNTHROID [Concomitant]
     Active Substance: LEVOTHYROXINE SODIUM
  7. PLAQUENIL [Concomitant]
     Active Substance: HYDROXYCHLOROQUINE SULFATE
  8. VITAMIN D [Concomitant]
     Active Substance: CHOLECALCIFEROL
  9. CELBREX [Concomitant]
  10. ALLEGRA [Concomitant]
     Active Substance: FEXOFENADINE HYDROCHLORIDE
  11. VALSARTAN. [Concomitant]
     Active Substance: VALSARTAN

REACTIONS (2)
  - Product substitution issue [None]
  - Rheumatoid arthritis [None]

NARRATIVE: CASE EVENT DATE: 20160512
